FAERS Safety Report 8895408 (Version 1)
Quarter: 2012Q4

REPORT INFORMATION
  Report Type: 
  Country: US (occurrence: US)
  Receive Date: 20121107
  Receipt Date: 20121107
  Transmission Date: 20130627
  Serious: Yes (Death)
  Sender: FDA-Public Use
  Company Number: CHPA2012US023054

PATIENT
  Age: 79 Year
  Sex: Female

DRUGS (3)
  1. EXCEDRIN EXTRA STRENGTH [Suspect]
     Indication: MIGRAINE
     Dosage: 1-2 DF, QD
     Route: 048
  2. TYLENOL [Suspect]
     Indication: MIGRAINE
     Dosage: 1 DF, QD
     Route: 048
  3. DRUG THERAPY NOS [Suspect]
     Indication: MIGRAINE
     Dosage: UNK, UNK

REACTIONS (2)
  - Death [Fatal]
  - Underdose [Unknown]
